FAERS Safety Report 9913762 (Version 2)
Quarter: 2014Q2

REPORT INFORMATION
  Report Type: Spontaneous
  Country: ES (occurrence: ES)
  Receive Date: 20140220
  Receipt Date: 20140604
  Transmission Date: 20141212
  Serious: No
  Sender: FDA-Public Use
  Company Number: ES-ASTRAZENECA-2014SE10501

PATIENT
  Age: 60 Year
  Sex: Male
  Weight: 78.8 kg

DRUGS (3)
  1. CRESTOR [Suspect]
     Route: 048
  2. CRESTOR [Suspect]
     Route: 048
     Dates: start: 20111109, end: 20140120
  3. CONDROSAN [Concomitant]
     Indication: OSTEOARTHRITIS
     Route: 048
     Dates: start: 20120604

REACTIONS (2)
  - Muscle rupture [Recovered/Resolved]
  - Myalgia [Recovered/Resolved]
